FAERS Safety Report 20392343 (Version 2)
Quarter: 2022Q1

REPORT INFORMATION
  Report Type: Report from Study
  Country: US (occurrence: US)
  Receive Date: 20220128
  Receipt Date: 20220222
  Transmission Date: 20220423
  Serious: Yes (Hospitalization, Other)
  Sender: FDA-Public Use
  Company Number: US-ALNYLAM PHARMACEUTICALS, INC.-ALN-2022-000286

PATIENT

DRUGS (1)
  1. GIVLAARI [Suspect]
     Active Substance: GIVOSIRAN SODIUM
     Indication: Product used for unknown indication
     Dosage: UNK
     Route: 065
     Dates: start: 20211123

REACTIONS (11)
  - Hospitalisation [Unknown]
  - Device issue [Unknown]
  - Catheter site bruise [Unknown]
  - Complication associated with device [Unknown]
  - Catheter placement [Unknown]
  - Aphasia [Unknown]
  - COVID-19 [Unknown]
  - Injection site pain [Unknown]
  - Amnesia [Unknown]
  - Brain injury [Unknown]
  - Product dose omission issue [Unknown]
